FAERS Safety Report 8356807-1 (Version None)
Quarter: 2012Q2

REPORT INFORMATION
  Report Type: 
  Country: None (occurrence: None)
  Receive Date: 20120514
  Receipt Date: 20120507
  Transmission Date: 20120825
  Serious: Yes (Hospitalization)
  Sender: FDA-Public Use
  Company Number: US-VERTEX PHARMACEUTICALS INC.-AE-2012-001747

PATIENT
  Sex: Female
  Weight: 54.026 kg

DRUGS (16)
  1. INCIVEK [Suspect]
     Indication: HEPATITIS C
     Route: 048
     Dates: start: 20111006, end: 20111227
  2. RIBAVIRIN [Concomitant]
     Indication: HEPATITIS C
     Route: 048
     Dates: start: 20111006, end: 20111110
  3. HYDROCHLOROTHIAZIDE [Concomitant]
  4. PEGASYS [Concomitant]
     Indication: HEPATITIS C
     Route: 058
     Dates: start: 20111006, end: 20111110
  5. PEGASYS [Concomitant]
     Dates: start: 20111205, end: 20111227
  6. VALIUM [Concomitant]
  7. HYDROXYZINE [Concomitant]
  8. PRINIVIL [Concomitant]
  9. OMEPRAZOLE [Concomitant]
  10. FLUOXETINE [Concomitant]
  11. NYSTATIN [Concomitant]
  12. ELOCON [Concomitant]
  13. HYDROCORTISONE [Concomitant]
  14. LEVOTHROID [Concomitant]
  15. PEGASYS [Concomitant]
     Route: 058
     Dates: start: 20111110, end: 20111205
  16. RIBAVIRIN [Concomitant]
     Route: 048
     Dates: start: 20111110, end: 20111227

REACTIONS (5)
  - HYPOTENSION [None]
  - DRUG RASH WITH EOSINOPHILIA AND SYSTEMIC SYMPTOMS [None]
  - CONFUSIONAL STATE [None]
  - ORAL CANDIDIASIS [None]
  - BALANCE DISORDER [None]
